FAERS Safety Report 9777574 (Version 3)
Quarter: 2014Q1

REPORT INFORMATION
  Report Type: Spontaneous
  Country: CA (occurrence: CA)
  Receive Date: 20131222
  Receipt Date: 20140206
  Transmission Date: 20141002
  Serious: Yes (Other)
  Sender: FDA-Public Use
  Company Number: CA-AMGEN-CANSP2013037822

PATIENT
  Age: 58 Year
  Sex: Female

DRUGS (6)
  1. ENBREL [Suspect]
     Indication: RHEUMATOID ARTHRITIS
     Dosage: 25 MG, UNK
     Route: 065
     Dates: start: 20020801
  2. HUMIRA [Suspect]
     Indication: PRODUCT USED FOR UNKNOWN INDICATION
     Dosage: UNK
     Route: 065
  3. ORENCIA [Suspect]
     Indication: PRODUCT USED FOR UNKNOWN INDICATION
     Dosage: UNK
     Route: 065
  4. APO-DICLOFENAC [Concomitant]
     Dosage: UNK
  5. IMURAN                             /00001501/ [Concomitant]
     Dosage: UNK
  6. IRON [Concomitant]
     Dosage: UNK

REACTIONS (29)
  - Diverticulitis [Unknown]
  - Activities of daily living impaired [Unknown]
  - Quality of life decreased [Unknown]
  - Spinal compression fracture [Not Recovered/Not Resolved]
  - Ankle fracture [Not Recovered/Not Resolved]
  - Fracture [Not Recovered/Not Resolved]
  - Lymphadenopathy [Unknown]
  - Gastrointestinal fungal infection [Not Recovered/Not Resolved]
  - Osteomyelitis chronic [Not Recovered/Not Resolved]
  - Lung infection [Unknown]
  - Irritable bowel syndrome [Unknown]
  - Impaired healing [Not Recovered/Not Resolved]
  - Gastrointestinal hypomotility [Unknown]
  - Vocal cord inflammation [Not Recovered/Not Resolved]
  - Choking sensation [Not Recovered/Not Resolved]
  - Therapeutic response decreased [Not Recovered/Not Resolved]
  - Headache [Not Recovered/Not Resolved]
  - Arthropathy [Unknown]
  - Axillary mass [Not Recovered/Not Resolved]
  - Axillary pain [Not Recovered/Not Resolved]
  - Gastrointestinal disorder [Not Recovered/Not Resolved]
  - Malaise [Unknown]
  - Joint injury [Unknown]
  - Drug resistance [Not Recovered/Not Resolved]
  - Dysphagia [Not Recovered/Not Resolved]
  - Infection [Unknown]
  - Fungal infection [Unknown]
  - Injection site bruising [Not Recovered/Not Resolved]
  - Injection site pain [Not Recovered/Not Resolved]
